FAERS Safety Report 4549083-9 (Version None)
Quarter: 2004Q4

REPORT INFORMATION
  Report Type: 
  Country: None (occurrence: None)
  Receive Date: 20041227
  Receipt Date: 20041015
  Transmission Date: 20050328
  Serious: No
  Sender: FDA-Public Use
  Company Number: 04P-163-0277583-00

PATIENT
  Age: 62 Year
  Sex: Female
  Weight: 53.5244 kg

DRUGS (7)
  1. HUMIRA [Suspect]
     Indication: RHEUMATOID ARTHRITIS
     Dosage: 40 MG, 1 IN 2 WK, SUBCUTANEOUS
     Route: 058
     Dates: start: 20040901, end: 20041002
  2. NAPROXEN [Concomitant]
  3. FOLIC ACID [Concomitant]
  4. TIMOLOL MALEATE [Concomitant]
  5. LATANOPROST [Concomitant]
  6. RESTASIS [Concomitant]
  7. METHOTREXATE SODIUM [Concomitant]

REACTIONS (3)
  - NASOPHARYNGITIS [None]
  - PRURITUS [None]
  - URTICARIA [None]
